FAERS Safety Report 21987089 (Version 1)
Quarter: 2023Q1

REPORT INFORMATION
  Report Type: Spontaneous
  Country: US (occurrence: US)
  Receive Date: 20230213
  Receipt Date: 20230213
  Transmission Date: 20230417
  Serious: No
  Sender: FDA-Public Use
  Company Number: US-BRISTOL-MYERS SQUIBB COMPANY-2023-021448

PATIENT
  Age: 82 Year
  Sex: Female
  Weight: 74.71 kg

DRUGS (1)
  1. REVLIMID [Suspect]
     Active Substance: LENALIDOMIDE
     Indication: Plasma cell myeloma
     Dosage: FREQ : 21 DAYS ON, 7 DAYS OFF.
     Route: 048
     Dates: start: 20200220

REACTIONS (1)
  - Rash vesicular [Unknown]
